FAERS Safety Report 9607010 (Version 2)
Quarter: 2013Q4

REPORT INFORMATION
  Report Type: Spontaneous
  Country: AR (occurrence: AR)
  Receive Date: 20131009
  Receipt Date: 20131021
  Transmission Date: 20140711
  Serious: Yes (Other)
  Sender: FDA-Public Use
  Company Number: AR-AMGEN-ARGSP2013070166

PATIENT
  Age: 59 Year
  Sex: Male

DRUGS (3)
  1. ENBREL [Suspect]
     Indication: RHEUMATOID ARTHRITIS
     Dosage: 50 MG, WEEKLY
     Route: 058
     Dates: start: 20070323, end: 201308
  2. FOLIC ACID [Concomitant]
     Dosage: UNK
     Route: 048
     Dates: start: 2003
  3. METHOTREXATE [Concomitant]
     Dosage: UNK
     Route: 048
     Dates: start: 2003

REACTIONS (3)
  - Tendon disorder [Recovering/Resolving]
  - Suture related complication [Recovering/Resolving]
  - Infection [Unknown]
